FAERS Safety Report 4956608-8 (Version None)
Quarter: 2006Q1

REPORT INFORMATION
  Report Type: 
  Country: None (occurrence: None)
  Receive Date: 20060322
  Receipt Date: 20060312
  Transmission Date: 20060701
  Serious: No
  Sender: FDA-Public Use
  Company Number: TPA2006A00431

PATIENT

DRUGS (1)
  1. ROZEREM [Suspect]
     Dosage: 8 MG; 16 MG, 1 IN 1 D, PER ORAL
     Route: 048

REACTIONS (1)
  - DRUG EFFECT DECREASED [None]
